FAERS Safety Report 9044803 (Version 1)
Quarter: 2013Q1

REPORT INFORMATION
  Report Type: Report from Study
  Country: US (occurrence: US)
  Receive Date: 20130130
  Receipt Date: 20130130
  Transmission Date: 20140127
  Serious: No
  Sender: FDA-Public Use
  Company Number: US-ABBOTT-12P-163-0937979-00

PATIENT
  Sex: Female

DRUGS (2)
  1. HUMIRA 40 MG/0.8 ML PEN [Suspect]
     Indication: PSORIASIS
     Dosage: INJECT UNDER SKIN EVERY OTHER WEEK.
     Route: 058
     Dates: start: 201110
  2. NEXIUM [Concomitant]
     Indication: PRODUCT USED FOR UNKNOWN INDICATION

REACTIONS (5)
  - Dyspepsia [Recovered/Resolved]
  - Gastrooesophageal reflux disease [Unknown]
  - Sinusitis [Unknown]
  - Abdominal pain upper [Recovered/Resolved]
  - Flatulence [Recovered/Resolved]
